FAERS Safety Report 11169451 (Version 1)
Quarter: 2015Q2

REPORT INFORMATION
  Report Type: Spontaneous
  Country: RU (occurrence: RU)
  Receive Date: 20150605
  Receipt Date: 20150605
  Transmission Date: 20150821
  Serious: Yes (Other)
  Sender: FDA-Public Use
  Company Number: RU-ASTRAZENECA-2015SE53224

PATIENT
  Sex: Male

DRUGS (3)
  1. SITAGLIPTIN [Suspect]
     Active Substance: SITAGLIPTIN
     Route: 065
  2. ONGLYZA [Suspect]
     Active Substance: SAXAGLIPTIN HYDROCHLORIDE
     Route: 048
  3. VALDAGLIPTIN [Suspect]
     Active Substance: VILDAGLIPTIN
     Route: 065

REACTIONS (4)
  - Confusional state [Unknown]
  - Memory impairment [Unknown]
  - Dyspnoea [Unknown]
  - Drug intolerance [Unknown]
